FAERS Safety Report 15601938 (Version 1)
Quarter: 2018Q4

REPORT INFORMATION
  Report Type: Spontaneous
  Country: US (occurrence: US)
  Receive Date: 20181109
  Receipt Date: 20181109
  Transmission Date: 20190205
  Serious: Yes (Hospitalization)
  Sender: FDA-Public Use
  Company Number: None

PATIENT
  Age: 61 Year
  Sex: Female

DRUGS (13)
  1. ASPIRIN 81MG [Concomitant]
     Active Substance: ASPIRIN
  2. CIPROFLOXACIN. [Concomitant]
     Active Substance: CIPROFLOXACIN
  3. BIOTIN 300MCG [Concomitant]
  4. CIPROFLOXACN 500MG [Concomitant]
     Active Substance: CIPROFLOXACIN
  5. VITAMIN D3 2000UNIT [Concomitant]
  6. COSENTYX [Suspect]
     Active Substance: SECUKINUMAB
     Indication: PSORIASIS
     Dosage: ?          OTHER FREQUENCY:Q MONTHLY;?
     Route: 058
     Dates: start: 20170928
  7. PRILOSEC [Concomitant]
     Active Substance: OMEPRAZOLE MAGNESIUM
  8. ROSUVASTATIN 40MG [Concomitant]
     Active Substance: ROSUVASTATIN
  9. IMIPENEM [Concomitant]
     Active Substance: IMIPENEM
  10. LEVOTHYROXIN 88MCG [Concomitant]
  11. COQ10 100MG [Concomitant]
  12. VENLAFAXINE 150MG ER [Concomitant]
  13. IRBESARTAN 75MG [Concomitant]

REACTIONS (1)
  - Infection [None]

NARRATIVE: CASE EVENT DATE: 20181104
